FAERS Safety Report 18951681 (Version 1)
Quarter: 2021Q1

REPORT INFORMATION
  Report Type: Report from Study
  Country: CN (occurrence: CN)
  Receive Date: 20210301
  Receipt Date: 20210301
  Transmission Date: 20210420
  Serious: Yes (Other)
  Sender: FDA-Public Use
  Company Number: CN-BRISTOL-MYERS SQUIBB COMPANY-BMS-2021-010306

PATIENT
  Sex: Male

DRUGS (1)
  1. NIVOLUMAB [Suspect]
     Active Substance: NIVOLUMAB
     Indication: GASTRIC CANCER
     Dosage: 180 MILLIGRAM, Q2WK
     Route: 041
     Dates: start: 20201211

REACTIONS (8)
  - Circulatory collapse [Not Recovered/Not Resolved]
  - Asthenia [Unknown]
  - Bedridden [Unknown]
  - Cachexia [Unknown]
  - Vomiting [Unknown]
  - Hypertension [Unknown]
  - Proteinuria [Unknown]
  - Performance status decreased [Unknown]
